FAERS Safety Report 8204837-2 (Version None)
Quarter: 2012Q1

REPORT INFORMATION
  Report Type: 
  Country: None (occurrence: None)
  Receive Date: 20120313
  Receipt Date: 20120308
  Transmission Date: 20120608
  Serious: Yes (Death, Other)
  Sender: FDA-Public Use
  Company Number: US-SANOFI-AVENTIS-2012SA015861

PATIENT
  Sex: Female

DRUGS (5)
  1. TRASTUZUMAB [Suspect]
     Dosage: ON DAY 1, 8 AND 15 OF EACH 21 DAY CYCLE FOR A TOTAL OF 4 CYCLES
     Route: 042
  2. DOCETAXEL [Suspect]
     Dosage: ON DAY 1 OF EACH CYCLE FOR A TOTAL OF FOUR CYCLES
     Route: 042
  3. TRASTUZUMAB [Suspect]
     Dosage: LOADING DOSE OVER 90 MINUTES ON DAY 1,  CYCLE 1ONLY
     Route: 042
  4. CYCLOPHOSPHAMIDE [Suspect]
     Route: 042
  5. TRASTUZUMAB [Suspect]
     Route: 042

REACTIONS (6)
  - EJECTION FRACTION DECREASED [None]
  - RESPIRATORY DISTRESS [None]
  - CARDIAC DISORDER [None]
  - FEBRILE NEUTROPENIA [None]
  - NEUTROPENIA [None]
  - ASPIRATION [None]
